FAERS Safety Report 8251852-9 (Version None)
Quarter: 2012Q2

REPORT INFORMATION
  Report Type: 
  Country: None (occurrence: None)
  Receive Date: 20120402
  Receipt Date: 20120327
  Transmission Date: 20120825
  Serious: Yes (Congenital Anomaly)
  Sender: FDA-Public Use
  Company Number: CA-ROXANE LABORATORIES, INC.-2012-RO-00908RO

PATIENT
  Age: 4 Week
  Sex: Female

DRUGS (3)
  1. METHOTREXATE [Suspect]
     Indication: FOETAL EXPOSURE DURING PREGNANCY
     Route: 064
  2. FOLIC ACID [Suspect]
     Indication: FOETAL EXPOSURE DURING PREGNANCY
     Route: 064
  3. HYDROXYCHLOROQUINE SULFATE [Suspect]
     Indication: FOETAL EXPOSURE DURING PREGNANCY
     Route: 064

REACTIONS (2)
  - ANTERIOR CHAMBER CLEAVAGE SYNDROME [None]
  - MATERNAL DRUGS AFFECTING FOETUS [None]
